FAERS Safety Report 20032924 (Version 3)
Quarter: 2021Q4

REPORT INFORMATION
  Report Type: Spontaneous
  Country: CA (occurrence: CA)
  Receive Date: 20211104
  Receipt Date: 20211230
  Transmission Date: 20220303
  Serious: Yes (Other)
  Sender: FDA-Public Use
  Company Number: CA-CELLTRION INC.-2021CA006180

PATIENT

DRUGS (8)
  1. INFLECTRA [Suspect]
     Active Substance: INFLIXIMAB-DYYB
     Indication: Colitis ulcerative
     Dosage: 350 MG Q 0, 2 AND 6 WEEKS, THEN EVERY 8 WEEKS
     Route: 041
     Dates: start: 20201119
  2. INFLECTRA [Suspect]
     Active Substance: INFLIXIMAB-DYYB
     Dosage: 350 MG, Q 0, 2 AND 6 WEEKS, THEN EVERY 8 WEEKS
     Route: 041
     Dates: start: 20210223
  3. INFLECTRA [Suspect]
     Active Substance: INFLIXIMAB-DYYB
     Dosage: 350 MG, Q 0, 2 AND 6 WEEKS, THEN EVERY 8 WEEKS
     Route: 041
     Dates: start: 20210420
  4. INFLECTRA [Suspect]
     Active Substance: INFLIXIMAB-DYYB
     Dosage: 350 MG, Q 0, 2 AND 6 WEEKS, THEN EVERY 8 WEEKS
     Route: 041
     Dates: start: 20210617
  5. INFLECTRA [Suspect]
     Active Substance: INFLIXIMAB-DYYB
     Dosage: 350 MG, Q 0, 2 AND 6 WEEKS, THEN EVERY 8 WEEKS
     Route: 041
     Dates: start: 20210811
  6. INFLECTRA [Suspect]
     Active Substance: INFLIXIMAB-DYYB
     Dosage: 350 MG, Q 0, 2 AND 6 WEEKS, THEN EVERY 8 WEEKS
     Route: 041
     Dates: start: 20211022
  7. INFLECTRA [Suspect]
     Active Substance: INFLIXIMAB-DYYB
     Dosage: 350 MG, 0, 2 AND 6 WEEKS, THEN EVERY 8 WEEKS
     Route: 041
     Dates: start: 20211217
  8. TYLENOL [Concomitant]
     Active Substance: ACETAMINOPHEN
     Indication: Premedication
     Dosage: 1000 MG
     Route: 048
     Dates: start: 20211217, end: 20211217

REACTIONS (6)
  - Condition aggravated [Unknown]
  - Arthralgia [Unknown]
  - Headache [Unknown]
  - Off label use [Unknown]
  - Intentional product use issue [Unknown]
  - Inappropriate schedule of product administration [Unknown]

NARRATIVE: CASE EVENT DATE: 20210420
